FAERS Safety Report 6836277-2 (Version None)
Quarter: 2010Q2

REPORT INFORMATION
  Report Type: 
  Country: None (occurrence: None)
  Receive Date: 20100624
  Receipt Date: 20100330
  Transmission Date: 20101027
  Serious: No
  Sender: FDA-Public Use
  Company Number: DKLU1060579

PATIENT
  Age: 20 Year
  Sex: Male

DRUGS (10)
  1. SABRIL [Suspect]
     Indication: CONVULSION
     Dosage: 1000 MG MILLIGRAM(S), 3 IN 1 D, ORAL
     Route: 048
     Dates: start: 20100120, end: 20100201
  2. GUANFACINE HYDROCHLORIDE [Concomitant]
  3. ABILIFY [Concomitant]
  4. TRIPTAL [Concomitant]
  5. CELONTIN [Concomitant]
  6. DIASTAT [Concomitant]
  7. VERSED [Concomitant]
  8. RISPERDAL [Concomitant]
  9. CLONAZEPAM [Concomitant]
  10. VIMPAT [Concomitant]

REACTIONS (4)
  - DECREASED ACTIVITY [None]
  - DISTURBANCE IN ATTENTION [None]
  - HYPERSENSITIVITY [None]
  - LETHARGY [None]
